FAERS Safety Report 15903225 (Version 2)
Quarter: 2019Q1

REPORT INFORMATION
  Report Type: Report from Study
  Country: PH (occurrence: PH)
  Receive Date: 20190202
  Receipt Date: 20190222
  Transmission Date: 20190417
  Serious: Yes (Death, Hospitalization)
  Sender: FDA-Public Use
  Company Number: PHHY2019PH023391

PATIENT
  Sex: Male

DRUGS (1)
  1. GLIVEC [Suspect]
     Active Substance: IMATINIB MESYLATE
     Indication: ACUTE LYMPHOCYTIC LEUKAEMIA
     Dosage: 8 DF, QD
     Route: 048
     Dates: start: 20180209

REACTIONS (8)
  - Colitis [Fatal]
  - Multiple organ dysfunction syndrome [Fatal]
  - Neutropenic colitis [Fatal]
  - Diarrhoea [Unknown]
  - Leukaemic infiltration [Fatal]
  - Acute lymphocytic leukaemia recurrent [Fatal]
  - Oral infection [Unknown]
  - Meningitis [Fatal]
